FAERS Safety Report 25036784 (Version 1)
Quarter: 2025Q1

REPORT INFORMATION
  Report Type: Spontaneous
  Country: US (occurrence: None)
  Receive Date: 20250304
  Receipt Date: 20250304
  Transmission Date: 20250409
  Serious: Yes (Other)
  Sender: FDA-CTU
  Company Number: None

PATIENT
  Sex: Female
  Weight: 57.6 kg

DRUGS (6)
  1. KYLEENA [Suspect]
     Active Substance: LEVONORGESTREL
     Indication: Contraception
     Route: 067
     Dates: start: 20250114, end: 20250304
  2. ADDERALL XR [Concomitant]
     Active Substance: AMPHETAMINE ASPARTATE\AMPHETAMINE SULFATE\DEXTROAMPHETAMINE SACCHARATE\DEXTROAMPHETAMINE SULFATE
  3. PROPRANOLOL [Concomitant]
     Active Substance: PROPRANOLOL HYDROCHLORIDE
  4. VIIBRYD [Concomitant]
     Active Substance: VILAZODONE HYDROCHLORIDE
  5. Ritual Women^s Multi [Concomitant]
  6. Ritual Symbiotic [Concomitant]

REACTIONS (8)
  - Acne [None]
  - Uterine spasm [None]
  - Intermenstrual bleeding [None]
  - Alopecia [None]
  - Pain of skin [None]
  - Nipple enlargement [None]
  - Breast enlargement [None]
  - Muscle spasms [None]
